FAERS Safety Report 10607075 (Version 1)
Quarter: 2014Q4

REPORT INFORMATION
  Report Type: Spontaneous
  Country: US (occurrence: None)
  Receive Date: 20141124
  Receipt Date: 20141124
  Transmission Date: 20150529
  Serious: Yes (Hospitalization)
  Sender: FDA-Public Use
  Company Number: None

PATIENT
  Age: 70 Year
  Sex: Female
  Weight: 88.63 kg

DRUGS (17)
  1. LYRICA [Suspect]
     Active Substance: PREGABALIN
     Indication: PAIN
     Dosage: 50MG, TID PO CHRONIC
     Route: 048
  2. HYDRALAZINE [Concomitant]
     Active Substance: HYDRALAZINE HYDROCHLORIDE
  3. FUROSEMIDE. [Concomitant]
     Active Substance: FUROSEMIDE
  4. ZINC [Concomitant]
     Active Substance: ZINC\ZINC CHLORIDE
  5. ALBUTEROL. [Concomitant]
     Active Substance: ALBUTEROL
  6. ASCORBIC ACID. [Concomitant]
     Active Substance: ASCORBIC ACID
  7. NORCO [Suspect]
     Active Substance: ACETAMINOPHEN\HYDROCODONE BITARTRATE
     Indication: PAIN
     Dosage: 325/5MG Q4HR PRN PO
     Route: 048
  8. ASA [Concomitant]
     Active Substance: ASPIRIN
  9. OMEPRAZOLE. [Concomitant]
     Active Substance: OMEPRAZOLE
  10. ISOPHANE INSULIN [Concomitant]
     Active Substance: INSULIN NOS
  11. BISACODYL. [Concomitant]
     Active Substance: BISACODYL
  12. NABIVOLOL [Concomitant]
  13. LORATADINE. [Concomitant]
     Active Substance: LORATADINE
  14. ROSUVASTATIN [Concomitant]
     Active Substance: ROSUVASTATIN
  15. TRAMADOL 50 MG [Suspect]
     Active Substance: TRAMADOL
     Indication: PAIN
     Dosage: 50MG PO Q6HR PRN PAIN
     Route: 048
  16. MOM [Concomitant]
     Active Substance: MAGNESIUM HYDROXIDE
  17. APAP [Concomitant]
     Active Substance: ACETAMINOPHEN

REACTIONS (4)
  - Confusional state [None]
  - Urinary tract infection [None]
  - Leukocytosis [None]
  - Mental status changes [None]

NARRATIVE: CASE EVENT DATE: 20140507
